FAERS Safety Report 10342252 (Version 1)
Quarter: 2014Q3

REPORT INFORMATION
  Report Type: Report from Study
  Country: DE (occurrence: DE)
  Receive Date: 20140725
  Receipt Date: 20140725
  Transmission Date: 20150326
  Serious: Yes (Death, Hospitalization)
  Sender: FDA-Public Use
  Company Number: PHHY2014DE091288

PATIENT
  Sex: Male

DRUGS (3)
  1. AMN107 [Suspect]
     Active Substance: NILOTINIB
     Dosage: 800 MG, QD
     Dates: start: 20090421
  2. FLUCONAZOLE. [Concomitant]
     Active Substance: FLUCONAZOLE
     Dosage: 200 MG, UNK
     Dates: start: 20090716, end: 20090803
  3. EXJADE [Concomitant]
     Active Substance: DEFERASIROX
     Dosage: 125 MG, UNK
     Dates: start: 20090723

REACTIONS (2)
  - Hypotension [Recovered/Resolved]
  - Death [Fatal]

NARRATIVE: CASE EVENT DATE: 20091104
